FAERS Safety Report 7506856-8 (Version None)
Quarter: 2011Q2

REPORT INFORMATION
  Report Type: 
  Country: None (occurrence: None)
  Receive Date: 20110526
  Receipt Date: 20110518
  Transmission Date: 20111010
  Serious: Yes (Other)
  Sender: FDA-Public Use
  Company Number: B0720994A

PATIENT
  Age: 83 Year
  Sex: Male

DRUGS (4)
  1. SELEGILINE HCL [Concomitant]
     Dosage: 3.125MG PER DAY
     Route: 048
  2. LOSARTAN POTASSIUM [Concomitant]
     Dosage: 50MG PER DAY
     Route: 048
  3. MADOPAR [Concomitant]
     Dosage: 500MG PER DAY
     Route: 048
  4. REQUIP [Suspect]
     Indication: PARKINSON'S DISEASE
     Dosage: 9MG PER DAY
     Route: 048
     Dates: start: 20100615, end: 20110221

REACTIONS (2)
  - SUDDEN ONSET OF SLEEP [None]
  - FALL [None]
